FAERS Safety Report 4990302-2 (Version None)
Quarter: 2006Q2

REPORT INFORMATION
  Report Type: 
  Country: None (occurrence: None)
  Receive Date: 20060503
  Receipt Date: 20060421
  Transmission Date: 20061013
  Serious: Yes (Death)
  Sender: FDA-Public Use
  Company Number: IN-BRISTOL-MYERS SQUIBB COMPANY-13354337

PATIENT
  Age: 49 Year
  Sex: Female

DRUGS (2)
  1. TAXOL [Suspect]
     Indication: OVARIAN CANCER
     Route: 042
  2. CARBOPLATIN [Suspect]
     Indication: OVARIAN CANCER
     Route: 042

REACTIONS (2)
  - ABDOMINAL STRANGULATED HERNIA [None]
  - BACTERIAL SEPSIS [None]
